FAERS Safety Report 23620380 (Version 1)
Quarter: 2024Q1

REPORT INFORMATION
  Report Type: Spontaneous
  Country: GB (occurrence: GB)
  Receive Date: 20240312
  Receipt Date: 20240312
  Transmission Date: 20240410
  Serious: Yes (Hospitalization, Other)
  Sender: FDA-Public Use
  Company Number: GB-PCCINC-2024-PPL-000156

PATIENT

DRUGS (13)
  1. SEVOFLURANE [Suspect]
     Active Substance: SEVOFLURANE
     Indication: Sedation
     Dosage: 5-9ML/HR; ;
     Dates: start: 20210924, end: 20210926
  2. ALFENTANIL [Concomitant]
     Active Substance: ALFENTANIL
     Indication: Sedation
     Dosage: UNK
     Dates: start: 20210924, end: 20210924
  3. ATRACURIUM [Concomitant]
     Active Substance: ATRACURIUM
     Indication: Paralysis
     Dosage: UNK
     Dates: start: 20210924, end: 20210927
  4. EPOPROSTENOL [Concomitant]
     Active Substance: EPOPROSTENOL
     Indication: Adverse drug reaction
     Dosage: UNK
     Dates: start: 20210925, end: 20210927
  5. FENTANYL [Concomitant]
     Active Substance: FENTANYL\FENTANYL CITRATE
     Indication: Sedation
     Dosage: UNK
     Dates: start: 20210924, end: 20211020
  6. GENTAMICIN [Concomitant]
     Active Substance: GENTAMICIN
     Indication: Infection
     Dosage: UNK
     Dates: start: 20210924, end: 20210928
  7. HEPARIN [Concomitant]
     Active Substance: HEPARIN SODIUM
     Indication: Adverse drug reaction
     Dosage: UNK
     Dates: start: 20210925, end: 20211015
  8. LACTULOSE [Concomitant]
     Active Substance: LACTULOSE
     Indication: Constipation
     Dosage: UNK
     Dates: start: 20210925, end: 20211024
  9. MIDAZOLAM [Concomitant]
     Active Substance: MIDAZOLAM
     Indication: Sedation
     Dosage: UNK
     Dates: start: 20210924, end: 20210924
  10. NORADRENALINE                      /00127501/ [Concomitant]
     Indication: Hypotension
     Dosage: UNK
     Dates: start: 20210924, end: 20210925
  11. PIPERACILLIN AND TAZOBACTAM [Concomitant]
     Active Substance: PIPERACILLIN SODIUM\TAZOBACTAM SODIUM
     Indication: Infection
     Dosage: UNK
     Dates: start: 20210924, end: 20210929
  12. PROPOFOL [Concomitant]
     Active Substance: PROPOFOL
     Indication: Sedation
     Dosage: UNK
     Dates: start: 20210824, end: 20211015
  13. TEICOPLANIN [Concomitant]
     Active Substance: TEICOPLANIN
     Indication: Antibiotic prophylaxis
     Dosage: UNK
     Dates: start: 20210924, end: 20210924

REACTIONS (2)
  - Nephropathy toxic [Recovered/Resolved]
  - Product use in unapproved indication [Unknown]

NARRATIVE: CASE EVENT DATE: 20210924
